FAERS Safety Report 18975381 (Version 1)
Quarter: 2021Q1

REPORT INFORMATION
  Report Type: Spontaneous
  Country: US (occurrence: US)
  Receive Date: 20210306
  Receipt Date: 20210306
  Transmission Date: 20210420
  Serious: Yes (Hospitalization)
  Sender: FDA-Public Use
  Company Number: US-ROCHE-2776780

PATIENT
  Age: 62 Year
  Sex: Female
  Weight: 76.73 kg

DRUGS (3)
  1. ALECENSA [Suspect]
     Active Substance: ALECTINIB HYDROCHLORIDE
     Indication: LUNG NEOPLASM MALIGNANT
     Dosage: 4 CAPSULES AT BREAKFAST, 4 CAPSULES AT DINNER ;ONGOING: UNKNOWN
     Route: 048
     Dates: start: 202012
  2. AMLODIPINE [Concomitant]
     Active Substance: AMLODIPINE BESYLATE
  3. HYDROCHLOROTHIAZIDE. [Concomitant]
     Active Substance: HYDROCHLOROTHIAZIDE

REACTIONS (4)
  - Fatigue [Unknown]
  - Cardiac disorder [Unknown]
  - Pneumonitis [Unknown]
  - Headache [Unknown]

NARRATIVE: CASE EVENT DATE: 20210219
